FAERS Safety Report 8966480 (Version 4)
Quarter: 2013Q4

REPORT INFORMATION
  Report Type: Spontaneous
  Country: PL (occurrence: PL)
  Receive Date: 20121216
  Receipt Date: 20131024
  Transmission Date: 20140711
  Serious: Yes (Other)
  Sender: FDA-Public Use
  Company Number: PL-UCBSA-072839

PATIENT
  Age: 19 Year
  Sex: Male

DRUGS (13)
  1. VIMPAT [Suspect]
     Dates: start: 20121112
  2. KEPPRA [Suspect]
     Indication: EPILEPSY
     Dates: start: 201110, end: 201206
  3. LAMOTRIGINE [Suspect]
     Dosage: 300-250 MG
     Dates: start: 201110
  4. FRISIUM [Suspect]
     Dates: start: 201110
  5. DEPAKINE CHRONOSPHERE [Suspect]
     Dates: end: 201206
  6. VIGABATRIN [Concomitant]
     Dosage: UNKNOWN DOSE
  7. GABAPENTIN [Concomitant]
     Dosage: UNKNOWN DOSE
  8. OXCARBAZEPINE [Concomitant]
     Dosage: UNKNOWN DOSE
  9. ORFIRIL [Concomitant]
     Dosage: UNKNOWN DOSE
  10. CARBAMAZEPINE [Concomitant]
     Dosage: UNKNOWN DOSE
  11. TIAGABINE [Concomitant]
     Dosage: UNKNOWN DOSE
  12. TOPIRAMATE [Concomitant]
  13. TOPIRAMATE [Concomitant]
     Dates: start: 201206, end: 201208

REACTIONS (3)
  - Thrombocytopenia [Unknown]
  - Epistaxis [Unknown]
  - Decreased appetite [Unknown]
